FAERS Safety Report 21627645 (Version 1)
Quarter: 2022Q4

REPORT INFORMATION
  Report Type: Spontaneous
  Country: PL (occurrence: PL)
  Receive Date: 20221122
  Receipt Date: 20221122
  Transmission Date: 20230113
  Serious: Yes (Death, Other)
  Sender: FDA-Public Use
  Company Number: PL-ASTELLAS-2022US041273

PATIENT
  Age: 102 Year
  Sex: Male

DRUGS (3)
  1. ENZALUTAMIDE [Suspect]
     Active Substance: ENZALUTAMIDE
     Indication: Prostate cancer
     Dosage: 80 MG, ONCE DAILY (ISSUED THE DRUG FOR 30 DAYS)
     Route: 065
     Dates: start: 20200728
  2. ENZALUTAMIDE [Suspect]
     Active Substance: ENZALUTAMIDE
     Dosage: 120 MG, ONCE DAILY (ATTEMPTED DOSE ESCALATION TO 120 MG/DAY)
     Route: 065
     Dates: start: 2020, end: 2020
  3. ENZALUTAMIDE [Suspect]
     Active Substance: ENZALUTAMIDE
     Dosage: 80 MG, ONCE DAILY (PATIENT WAS BACK TO 80 MG/ DAY)
     Route: 065
     Dates: start: 2020, end: 202106

REACTIONS (19)
  - Cardiac failure [Fatal]
  - Pulmonary fibrosis [Unknown]
  - Pleural effusion [Unknown]
  - Atelectasis [Unknown]
  - Pulmonary mass [Unknown]
  - Pulmonary calcification [Unknown]
  - Pleural thickening [Unknown]
  - Pleural calcification [Unknown]
  - Emphysema [Unknown]
  - Lymph node calcification [Unknown]
  - Benign prostatic hyperplasia [Unknown]
  - Prostatic calcification [Unknown]
  - Rib fracture [Unknown]
  - General physical health deterioration [Unknown]
  - Dizziness [Unknown]
  - Fall [Unknown]
  - Asthenia [Unknown]
  - Underdose [Recovered/Resolved]
  - Off label use [Recovered/Resolved]

NARRATIVE: CASE EVENT DATE: 20200728
